FAERS Safety Report 23679296 (Version 1)
Quarter: 2024Q1

REPORT INFORMATION
  Report Type: Report from Study
  Country: CA (occurrence: None)
  Receive Date: 20240327
  Receipt Date: 20240327
  Transmission Date: 20240410
  Serious: Yes (Other)
  Sender: FDA-Public Use
  Company Number: 2024A068852

PATIENT
  Sex: Female

DRUGS (4)
  1. FASENRA [Suspect]
     Active Substance: BENRALIZUMAB
     Indication: Asthma
     Route: 058
     Dates: start: 20200831
  2. AEREUS [Concomitant]
     Dosage: 5MG DIE
  3. BRICANYL [Concomitant]
     Active Substance: TERBUTALINE SULFATE
     Dosage: 0.5 MG - 1INH QID
  4. ZENHALE [Concomitant]
     Active Substance: FORMOTEROL FUMARATE\MOMETASONE FUROATE
     Dosage: 200 MCG - 2INH 2X DAY

REACTIONS (1)
  - Hypertension [Unknown]
